FAERS Safety Report 10856170 (Version 6)
Quarter: 2015Q2

REPORT INFORMATION
  Report Type: Report from Study
  Country: BR (occurrence: BR)
  Receive Date: 20150223
  Receipt Date: 20150417
  Transmission Date: 20150821
  Serious: Yes (Death, Life-Threatening, Hospitalization, Other)
  Sender: FDA-Public Use
  Company Number: PHHY2014BR133391

PATIENT
  Age: 59 Year
  Sex: Male
  Weight: 72 kg

DRUGS (31)
  1. FUROSEMIDE. [Concomitant]
     Active Substance: FUROSEMIDE
     Indication: BLOOD PRESSURE ABNORMAL
     Dosage: 1 DF (80MG), QD (IN THE MORNING)
     Route: 048
  2. INSULINA NPH [Concomitant]
     Active Substance: INSULIN HUMAN
     Dosage: 20 MG, UNK
     Route: 065
  3. SANDOSTATIN LAR DEPOT [Suspect]
     Active Substance: OCTREOTIDE ACETATE
     Indication: PITUITARY TUMOUR
     Dosage: 20 MG, QMO
     Route: 030
     Dates: start: 20140128
  4. PRADA [Suspect]
     Active Substance: PANTOPRAZOLE SODIUM
     Indication: GASTROINTESTINAL DISORDER
     Dosage: 4 DF (TABLETS), QD
     Route: 065
  5. AMLODIPINE [Concomitant]
     Active Substance: AMLODIPINE BESYLATE
     Indication: BLOOD PRESSURE ABNORMAL
     Dosage: 2 DF, QD (IN THE MORNING)
     Route: 065
  6. ATENOLOL. [Concomitant]
     Active Substance: ATENOLOL
     Indication: DIABETES MELLITUS
     Dosage: 1 DF (40MG), BID
     Route: 048
  7. INSULIN REGULAR HM [Concomitant]
     Active Substance: INSULIN NOS
     Dosage: 15 MG, EVERY 3 MONTHS
     Route: 065
  8. SANDOSTATIN LAR DEPOT [Suspect]
     Active Substance: OCTREOTIDE ACETATE
     Indication: ACROMEGALY
     Dosage: 30 MG, QMO
     Route: 030
  9. SANDOSTATIN LAR DEPOT [Suspect]
     Active Substance: OCTREOTIDE ACETATE
     Dosage: 30 MG (1 VIAL) EACH 28 DAYS
     Route: 030
     Dates: end: 20150302
  10. METFORMIN [Concomitant]
     Active Substance: METFORMIN HYDROCHLORIDE
     Indication: DIABETES MELLITUS
  11. NORTRIPTYLINE [Concomitant]
     Active Substance: NORTRIPTYLINE
     Indication: DEPRESSION
     Dosage: 1 DF, BID
     Route: 048
  12. METHYLDOPA. [Concomitant]
     Active Substance: METHYLDOPA
     Indication: DIABETES MELLITUS
  13. SANDOSTATIN LAR DEPOT [Suspect]
     Active Substance: OCTREOTIDE ACETATE
     Indication: NEOPLASM
     Dosage: 20 MG, QMO
     Route: 030
     Dates: start: 201312
  14. METFORMIN [Concomitant]
     Active Substance: METFORMIN HYDROCHLORIDE
     Indication: BLOOD PRESSURE ABNORMAL
     Dosage: 1 DF (850 MG), TID ( IN THE MORNING, IN THE AFTERNOON AND AT NIGHT)
     Route: 048
     Dates: start: 1996
  15. ATENOLOL. [Concomitant]
     Active Substance: ATENOLOL
     Indication: BLOOD PRESSURE ABNORMAL
     Dosage: 1 DF (80MG), BID (IN THE MORNING AND AT NIGHT)
     Route: 065
  16. ENALAPRIL [Concomitant]
     Active Substance: ENALAPRIL
     Indication: BLOOD PRESSURE ABNORMAL
     Dosage: 1 DF, BID ( IN THE MORNING AND AT NIGHT)
     Route: 065
  17. FUROSEMIDE. [Concomitant]
     Active Substance: FUROSEMIDE
     Indication: CONSTIPATION
     Dosage: 1 DF (40 MG), BID
     Route: 048
  18. NORTRIPTYLINE [Concomitant]
     Active Substance: NORTRIPTYLINE
     Indication: DIABETES MELLITUS
  19. METHYLDOPA. [Concomitant]
     Active Substance: METHYLDOPA
     Indication: BLOOD PRESSURE ABNORMAL
     Dosage: 1 DF, BID ( IN THE MORNING AND AT NIGHT)
     Route: 048
  20. AAS [Concomitant]
     Active Substance: ASPIRIN
     Indication: SLEEP DISORDER
  21. AAS [Concomitant]
     Active Substance: ASPIRIN
     Indication: BLOOD PRESSURE ABNORMAL
     Dosage: 1 DF, QD (IN THE MORNING)
     Route: 048
  22. CAPTOPRIL. [Concomitant]
     Active Substance: CAPTOPRIL
     Indication: DIABETES MELLITUS
     Dosage: 1 DF, QD (IN THE MORNING)
     Route: 065
  23. INSULIN REGULAR HM [Concomitant]
     Active Substance: INSULIN NOS
     Dosage: 10 U, QD
     Route: 058
  24. CARBAMAZEPINE. [Concomitant]
     Active Substance: CARBAMAZEPINE
     Indication: DIABETES MELLITUS
     Dosage: 1 DF, BID
     Route: 048
  25. SANDOSTATIN LAR DEPOT [Suspect]
     Active Substance: OCTREOTIDE ACETATE
     Dosage: 30 MG, EACH 28 DAYS
     Route: 030
     Dates: start: 20140110
  26. SANDOSTATIN LAR DEPOT [Suspect]
     Active Substance: OCTREOTIDE ACETATE
     Dosage: 30 MG (1 VIAL), QMO
     Route: 030
  27. INSULINA NPH [Concomitant]
     Active Substance: INSULIN HUMAN
     Indication: DIABETES MELLITUS
     Dosage: 30 U, QD (MORNING OR A HALF HOUR BEFORE LUNCH)
     Route: 065
  28. INSULIN REGULAR HM [Concomitant]
     Active Substance: INSULIN NOS
     Dosage: 8 OT, UNK
     Route: 065
  29. SANDOSTATIN LAR DEPOT [Suspect]
     Active Substance: OCTREOTIDE ACETATE
     Dosage: 1 DF (30 MG), QMO
     Route: 030
  30. INSULIN REGULAR HM [Concomitant]
     Active Substance: INSULIN NOS
     Indication: DIABETES MELLITUS
     Dosage: 8 U, QD (AFTER 21:00 HS)
     Route: 065
     Dates: start: 201311
  31. DIAZEPAM. [Concomitant]
     Active Substance: DIAZEPAM
     Indication: SLEEP DISORDER
     Dosage: 1 DF, QD (AT NIGHT)
     Route: 048

REACTIONS (34)
  - Fatigue [Fatal]
  - Urinary tract disorder [Not Recovered/Not Resolved]
  - Blood glucose increased [Not Recovered/Not Resolved]
  - Pallor [Not Recovered/Not Resolved]
  - Dysphonia [Not Recovered/Not Resolved]
  - Cough [Fatal]
  - Deformity [Recovering/Resolving]
  - Abnormal behaviour [Not Recovered/Not Resolved]
  - Hyperhidrosis [Unknown]
  - Memory impairment [Recovering/Resolving]
  - Eating disorder [Not Recovered/Not Resolved]
  - Peripheral swelling [Not Recovered/Not Resolved]
  - Swelling face [Not Recovered/Not Resolved]
  - Blood glucose fluctuation [Not Recovered/Not Resolved]
  - Spinal pain [Not Recovered/Not Resolved]
  - Pyrexia [Recovered/Resolved]
  - Pyrexia [Fatal]
  - Muscular weakness [Recovering/Resolving]
  - Headache [Not Recovered/Not Resolved]
  - Cerebrovascular accident [Unknown]
  - Dysphagia [Unknown]
  - Confusional state [Recovering/Resolving]
  - Pain in extremity [Not Recovered/Not Resolved]
  - Blood pressure abnormal [Recovering/Resolving]
  - Hypoacusis [Not Recovered/Not Resolved]
  - Head discomfort [Unknown]
  - Pulmonary congestion [Fatal]
  - Neoplasm progression [Unknown]
  - Pain [Unknown]
  - Faeces discoloured [Unknown]
  - Product use issue [Unknown]
  - Pneumonia [Fatal]
  - Blood glucose decreased [Not Recovered/Not Resolved]
  - Somnolence [Not Recovered/Not Resolved]

NARRATIVE: CASE EVENT DATE: 20140112
